FAERS Safety Report 6192286-0 (Version None)
Quarter: 2009Q2

REPORT INFORMATION
  Report Type: 
  Country: None (occurrence: None)
  Receive Date: 20090515
  Receipt Date: 20090512
  Transmission Date: 20091009
  Serious: Yes (Hospitalization)
  Sender: FDA-Public Use
  Company Number: GB-ABBOTT-09P-167-0573394-00

PATIENT
  Sex: Male
  Weight: 76 kg

DRUGS (11)
  1. HUMIRA [Suspect]
     Indication: RHEUMATOID ARTHRITIS
     Route: 058
     Dates: start: 20080814
  2. METHOTREXATE [Concomitant]
     Indication: DRUG USE FOR UNKNOWN INDICATION
     Dates: start: 20080905
  3. PREDNISOLONE [Concomitant]
     Indication: DRUG USE FOR UNKNOWN INDICATION
     Dates: start: 20080905
  4. ASPIRIN [Concomitant]
     Indication: DRUG USE FOR UNKNOWN INDICATION
     Dates: start: 20080905
  5. ATENOLOL [Concomitant]
     Indication: DRUG USE FOR UNKNOWN INDICATION
     Dates: start: 20080905
  6. ATORVASTATIN [Concomitant]
     Indication: DRUG USE FOR UNKNOWN INDICATION
     Dates: start: 20080905
  7. DIDRONEL [Concomitant]
     Indication: DRUG USE FOR UNKNOWN INDICATION
     Dates: start: 20080905
  8. FOLIC ACID [Concomitant]
     Indication: DRUG USE FOR UNKNOWN INDICATION
     Dates: start: 20080905
  9. LANSOPRAZOLE [Concomitant]
     Indication: DRUG USE FOR UNKNOWN INDICATION
     Dates: start: 20080905
  10. NICORANDIL [Concomitant]
     Indication: DRUG USE FOR UNKNOWN INDICATION
     Dates: start: 20080905
  11. PERINDOPRIL [Concomitant]
     Indication: DRUG USE FOR UNKNOWN INDICATION
     Dates: start: 20080905

REACTIONS (1)
  - EPISTAXIS [None]
